FAERS Safety Report 9891636 (Version 1)
Quarter: 2014Q1

REPORT INFORMATION
  Report Type: Spontaneous
  Country: IT (occurrence: IT)
  Receive Date: 20140212
  Receipt Date: 20140212
  Transmission Date: 20141002
  Serious: Yes (Death, Other)
  Sender: FDA-Public Use
  Company Number: PHHY2014IT016887

PATIENT
  Sex: 0

DRUGS (3)
  1. CICLOSPORIN [Suspect]
     Indication: PROPHYLAXIS AGAINST GRAFT VERSUS HOST DISEASE
  2. THIOTEPA [Concomitant]
  3. CYCLOPHOSPHAMIDE [Concomitant]

REACTIONS (5)
  - Multi-organ failure [Fatal]
  - Sepsis [Fatal]
  - Cytomegalovirus infection [Unknown]
  - Acute graft versus host disease [Unknown]
  - Thrombocytopenia [Unknown]
